FAERS Safety Report 10979937 (Version 2)
Quarter: 2015Q2

REPORT INFORMATION
  Report Type: Spontaneous
  Country: US (occurrence: US)
  Receive Date: 20150402
  Receipt Date: 20150525
  Transmission Date: 20150821
  Serious: No
  Sender: FDA-Public Use
  Company Number: US-JNJFOC-20130806915

PATIENT
  Age: 45 Year
  Sex: Male
  Weight: 70.31 kg

DRUGS (4)
  1. IMODIUM MULTI-SYMPTOM RELIEF [Suspect]
     Active Substance: DIMETHICONE\LOPERAMIDE HYDROCHLORIDE
     Route: 048
  2. POTASSIUM [Concomitant]
     Active Substance: POTASSIUM
     Indication: ROUTINE HEALTH MAINTENANCE
     Route: 065
  3. MULTIVITAMINS [Concomitant]
     Active Substance: VITAMINS
     Indication: VITAMIN SUPPLEMENTATION
     Route: 065
  4. IMODIUM MULTI-SYMPTOM RELIEF [Suspect]
     Active Substance: DIMETHICONE\LOPERAMIDE HYDROCHLORIDE
     Indication: DIARRHOEA
     Dosage: 1 OR 2 CAPLETS ONCE OR TWICE A WEEK
     Route: 048
     Dates: start: 20130612

REACTIONS (3)
  - Throat irritation [Recovered/Resolved]
  - Product formulation issue [Recovered/Resolved]
  - Choking sensation [Recovered/Resolved]

NARRATIVE: CASE EVENT DATE: 20130731
